FAERS Safety Report 6194804-5 (Version None)
Quarter: 2009Q2

REPORT INFORMATION
  Report Type: 
  Country: None (occurrence: None)
  Receive Date: 20090515
  Receipt Date: 20090515
  Transmission Date: 20091009
  Serious: Yes (Disabling)
  Sender: FDA-Public Use
  Company Number: None

PATIENT
  Age: 40 Year
  Sex: Female
  Weight: 86.1834 kg

DRUGS (7)
  1. BETASERON [Suspect]
     Indication: PROGRESSIVE MULTIPLE SCLEROSIS
     Dosage: 0.3 MG EVERY OTHER DAY SUBCUTANEOUS
     Route: 058
     Dates: start: 20020101, end: 20040101
  2. NEURONTIN [Concomitant]
  3. BACLOFEN [Concomitant]
  4. AMITRIPTYLINE HCL [Concomitant]
  5. PROVIGIL [Concomitant]
  6. EFFEXOR [Concomitant]
  7. TYLENOL [Concomitant]

REACTIONS (1)
  - INFLUENZA LIKE ILLNESS [None]
